FAERS Safety Report 7892376-8 (Version None)
Quarter: 2011Q4

REPORT INFORMATION
  Report Type: 
  Country: None (occurrence: None)
  Receive Date: 20111103
  Receipt Date: 20111103
  Transmission Date: 20120403
  Serious: Yes (Other)
  Sender: FDA-Public Use
  Company Number: None

PATIENT
  Sex: Male
  Weight: 143.3367 kg

DRUGS (1)
  1. WELLBUTRIN XL [Suspect]
     Indication: DEPRESSION
     Dosage: 150 MG BID ORAL
     Route: 048
     Dates: start: 20080101

REACTIONS (2)
  - HEADACHE [None]
  - PRODUCT SUBSTITUTION ISSUE [None]
